FAERS Safety Report 5569876-9 (Version None)
Quarter: 2007Q4

REPORT INFORMATION
  Report Type: 
  Country: None (occurrence: None)
  Receive Date: 20071220
  Receipt Date: 20070226
  Transmission Date: 20080405
  Serious: No
  Sender: FDA-Public Use
  Company Number: US-ABBOTT-07P-163-0360453-00

PATIENT
  Sex: Female
  Weight: 114 kg

DRUGS (4)
  1. OMNICEF [Suspect]
     Indication: INFLUENZA
     Route: 048
     Dates: start: 20070204, end: 20070207
  2. OMNICEF [Suspect]
     Indication: RESPIRATORY TRACT INFECTION
     Route: 048
     Dates: start: 20070210, end: 20070210
  3. OMNICEF [Suspect]
     Indication: PRODUCTIVE COUGH
  4. OMNICEF [Suspect]
     Indication: BRONCHITIS

REACTIONS (3)
  - BURNING SENSATION [None]
  - ERYTHEMA [None]
  - RASH PAPULAR [None]
